FAERS Safety Report 21575747 (Version 3)
Quarter: 2022Q4

REPORT INFORMATION
  Report Type: Spontaneous
  Country: US (occurrence: None)
  Receive Date: 20221110
  Receipt Date: 20221228
  Transmission Date: 20230112
  Serious: Yes (Other)
  Sender: FDA-Public Use
  Company Number: US-ROCHE-3213660

PATIENT
  Sex: Female

DRUGS (1)
  1. OCREVUS [Suspect]
     Active Substance: OCRELIZUMAB
     Indication: Multiple sclerosis
     Route: 065

REACTIONS (10)
  - Multiple sclerosis pseudo relapse [Unknown]
  - Fatigue [Unknown]
  - Muscular weakness [Unknown]
  - Emotional distress [Unknown]
  - Back pain [Unknown]
  - Flushing [Unknown]
  - Pyrexia [Unknown]
  - Feeling hot [Unknown]
  - Urticaria [Unknown]
  - Nausea [Unknown]
